FAERS Safety Report 17915842 (Version 1)
Quarter: 2020Q2

REPORT INFORMATION
  Report Type: Spontaneous
  Country: US (occurrence: US)
  Receive Date: 20200618
  Receipt Date: 20200618
  Transmission Date: 20200714
  Serious: No
  Sender: FDA-Public Use
  Company Number: None

PATIENT
  Age: 71 Year
  Sex: Female
  Weight: 68.4 kg

DRUGS (7)
  1. METFORMIN [Suspect]
     Active Substance: METFORMIN HYDROCHLORIDE
     Indication: DIABETES MELLITUS
     Dosage: ?          QUANTITY:90 TABLET(S);?
     Route: 048
     Dates: start: 20200509, end: 20200618
  2. FLUTICASONE. [Concomitant]
     Active Substance: FLUTICASONE
  3. ASPIRIN. [Concomitant]
     Active Substance: ASPIRIN
  4. METOPROLOL. [Concomitant]
     Active Substance: METOPROLOL
  5. OLMESARTAN [Concomitant]
     Active Substance: OLMESARTAN
  6. AMLODIPINE [Concomitant]
     Active Substance: AMLODIPINE BESYLATE
  7. ROSUVASTATIN. [Concomitant]
     Active Substance: ROSUVASTATIN

REACTIONS (6)
  - Pain in extremity [None]
  - Muscular weakness [None]
  - Arthralgia [None]
  - Fatigue [None]
  - Cough [None]
  - Dry mouth [None]

NARRATIVE: CASE EVENT DATE: 20200509
